FAERS Safety Report 7174835-9 (Version None)
Quarter: 2010Q4

REPORT INFORMATION
  Report Type: 
  Country: None (occurrence: None)
  Receive Date: 20101219
  Receipt Date: 20100520
  Transmission Date: 20110411
  Serious: Yes (Other)
  Sender: FDA-Public Use
  Company Number: US-AMGEN-QUU394309

PATIENT

DRUGS (2)
  1. ENBREL [Suspect]
     Indication: RHEUMATOID ARTHRITIS
     Dosage: 50 MG, QWK
     Route: 058
     Dates: start: 20090313
  2. METHOTREXATE [Concomitant]
     Dosage: 2.5 MG, QD
     Dates: start: 20080801

REACTIONS (4)
  - HAND DEFORMITY [None]
  - NASOPHARYNGITIS [None]
  - PAIN IN EXTREMITY [None]
  - PULMONARY FIBROSIS [None]
